FAERS Safety Report 4860159-9 (Version None)
Quarter: 2005Q4

REPORT INFORMATION
  Report Type: 
  Country: None (occurrence: None)
  Receive Date: 20051214
  Receipt Date: 20051128
  Transmission Date: 20060501
  Serious: Yes (Other)
  Sender: FDA-Public Use
  Company Number: US200511003304

PATIENT
  Age: 47 Year
  Sex: Female

DRUGS (12)
  1. FORTEO [Suspect]
     Indication: OSTEOPOROSIS
     Dosage: UNK D/F
     Route: 065
     Dates: start: 20050401
  2. FORTEO PEN (FORTEO PEN) [Concomitant]
  3. FOSAMAX /ITA/ (ALENDRONATE SODIUM) [Concomitant]
  4. CALAN [Concomitant]
  5. ENAPRIL (ENALAPRIL) [Concomitant]
  6. SYNTHROID [Concomitant]
  7. CALCIUM CARBONATE (CALCIUM CARBONATE) [Concomitant]
  8. ERGOCALCIFEROL (VITAMIN D) (ERGOCALCIFEROL (VITAMIN D) [Concomitant]
  9. ESTRACE [Concomitant]
  10. ELAVIL [Concomitant]
  11. PROPOXYPHENE HCL AND ACETAMINOPHEN (DEXTROPROPOXYPHENE HYDROCHLORIDE, [Concomitant]
  12. LASIX [Concomitant]

REACTIONS (3)
  - ATRIAL FIBRILLATION [None]
  - HEART RATE IRREGULAR [None]
  - PHARMACEUTICAL PRODUCT COMPLAINT [None]
